FAERS Safety Report 5902765-6 (Version None)
Quarter: 2008Q3

REPORT INFORMATION
  Report Type: 
  Country: None (occurrence: None)
  Receive Date: 20080929
  Receipt Date: 20080929
  Transmission Date: 20090109
  Serious: Yes (Life-Threatening, Hospitalization)
  Sender: FDA-Public Use
  Company Number: None

PATIENT
  Age: 43 Year
  Sex: Female
  Weight: 52.1637 kg

DRUGS (1)
  1. BACTRIM [Suspect]
     Indication: SKIN INFECTION
     Dates: start: 20080801, end: 20080812

REACTIONS (2)
  - HAND FRACTURE [None]
  - THROMBOCYTOPENIA [None]
